FAERS Safety Report 24839472 (Version 1)
Quarter: 2025Q1

REPORT INFORMATION
  Report Type: Spontaneous
  Country: IN (occurrence: IN)
  Receive Date: 20250114
  Receipt Date: 20250114
  Transmission Date: 20250409
  Serious: Yes (Death)
  Sender: ROCHE
  Company Number: IN-ROCHE-10000131664

PATIENT
  Age: 56 Year
  Sex: Female

DRUGS (1)
  1. TECENTRIQ [Suspect]
     Active Substance: ATEZOLIZUMAB
     Indication: Gallbladder adenocarcinoma
     Route: 042
     Dates: start: 20241005

REACTIONS (3)
  - Full blood count abnormal [Unknown]
  - Respiratory disorder [Fatal]
  - Lung disorder [Fatal]
